FAERS Safety Report 19389833 (Version 1)
Quarter: 2021Q2

REPORT INFORMATION
  Report Type: Spontaneous
  Country: US (occurrence: US)
  Receive Date: 20210608
  Receipt Date: 20210608
  Transmission Date: 20210717
  Serious: Yes (Life-Threatening, Hospitalization, Other)
  Sender: FDA-Public Use
  Company Number: US-SANOFI-AVENTIS-2011SA043553

PATIENT
  Age: 49 Year
  Sex: Male

DRUGS (1)
  1. ZOLPIDEM TARTRATE. [Suspect]
     Active Substance: ZOLPIDEM TARTRATE
     Indication: INSOMNIA
     Dosage: UNK UNK,UNK
     Route: 065

REACTIONS (15)
  - Craniocerebral injury [Unknown]
  - Eye injury [Unknown]
  - Blindness [Unknown]
  - Parasomnia [Unknown]
  - Subdural haematoma [Unknown]
  - Delirium [Unknown]
  - Gun shot wound [Unknown]
  - Cerebral haemorrhage [Unknown]
  - Confusional state [Unknown]
  - Labelled drug-food interaction medication error [Unknown]
  - Suicide attempt [Unknown]
  - Somnambulism [Unknown]
  - Sleep-related eating disorder [Unknown]
  - Disorientation [Unknown]
  - Subarachnoid haemorrhage [Unknown]
